FAERS Safety Report 23269179 (Version 1)
Quarter: 2023Q4

REPORT INFORMATION
  Report Type: Spontaneous
  Country: FR (occurrence: FR)
  Receive Date: 20231207
  Receipt Date: 20231207
  Transmission Date: 20240110
  Serious: Yes (Hospitalization)
  Sender: FDA-Public Use
  Company Number: FR-SANDOZ-SDZ2023FR062510

PATIENT
  Age: 75 Year
  Sex: Male

DRUGS (2)
  1. IOMERON [Suspect]
     Active Substance: IOMEPROL
     Indication: Computerised tomogram
     Dosage: 1 DOSE UNIQUE
     Route: 042
     Dates: start: 20230518, end: 20230518
  2. ACETAMINOPHEN [Suspect]
     Active Substance: ACETAMINOPHEN
     Indication: Analgesic intervention supportive therapy
     Dosage: EN SI BESOIN
     Route: 048
     Dates: start: 2022, end: 20230526

REACTIONS (2)
  - Dermatitis bullous [Recovered/Resolved]
  - Fixed eruption [Recovered/Resolved]

NARRATIVE: CASE EVENT DATE: 20230520
